FAERS Safety Report 6084192-7 (Version None)
Quarter: 2009Q1

REPORT INFORMATION
  Report Type: 
  Country: None (occurrence: None)
  Receive Date: 20090217
  Receipt Date: 20090206
  Transmission Date: 20090719
  Serious: Yes (Hospitalization)
  Sender: FDA-Public Use
  Company Number: 2009SP002756

PATIENT
  Age: 34 Year
  Sex: Male

DRUGS (1)
  1. PEG-INTRON (PEGINTERFERON ALFA-2B) (PEGINTERFERON ALFA-2B) [Suspect]
     Indication: HEPATITIS B
     Dosage: 100 MCG; QW; SC
     Route: 058
     Dates: start: 20080411, end: 20080919

REACTIONS (2)
  - CONDITION AGGRAVATED [None]
  - HEPATITIS B [None]
